FAERS Safety Report 23192003 (Version 2)
Quarter: 2024Q1

REPORT INFORMATION
  Report Type: Report from Study
  Country: US (occurrence: US)
  Receive Date: 20231116
  Receipt Date: 20240201
  Transmission Date: 20240410
  Serious: Yes (Other)
  Sender: FDA-Public Use
  Company Number: US-BIOVITRUM-2023-US-018117

PATIENT
  Age: 75 Year
  Sex: Female

DRUGS (4)
  1. DOPTELET [Suspect]
     Active Substance: AVATROMBOPAG MALEATE
     Indication: Immune thrombocytopenia
     Dosage: 20 MG DAILY
     Route: 048
     Dates: start: 202305
  2. DOPTELET [Suspect]
     Active Substance: AVATROMBOPAG MALEATE
     Dosage: 20 MG, 2 TABLETS (40 MG) EVERY OTHER DAY ALTERNATING WITH TAKING ONE TABLET EVERY OTHER DAY?ON MONDA
     Route: 048
     Dates: start: 202305, end: 20231108
  3. DOPTELET [Suspect]
     Active Substance: AVATROMBOPAG MALEATE
     Dosage: 20 MG (2 TABS) DAILY AT THE SAME TIME
     Route: 048
     Dates: start: 202308
  4. DOPTELET [Suspect]
     Active Substance: AVATROMBOPAG MALEATE
     Dosage: SHE ADDED A DAY BACK IN EVERY WEEK

REACTIONS (9)
  - Abdominal pain upper [Recovering/Resolving]
  - Bronchitis [Recovering/Resolving]
  - Glaucoma [Unknown]
  - Blood pressure increased [Recovering/Resolving]
  - Platelet count decreased [Recovering/Resolving]
  - Therapeutic product ineffective [Unknown]
  - Haemorrhage [Recovering/Resolving]
  - Product use complaint [Unknown]
  - Product dose omission issue [Unknown]
